FAERS Safety Report 4696154-2 (Version None)
Quarter: 2005Q2

REPORT INFORMATION
  Report Type: 
  Country: None (occurrence: None)
  Receive Date: 20050620
  Receipt Date: 20050602
  Transmission Date: 20051028
  Serious: Yes (Disabling)
  Sender: FDA-Public Use
  Company Number: GB-YAMANOUCHI-YEHQ20050537

PATIENT
  Age: 52 Year
  Sex: Female

DRUGS (2)
  1. VESICARE [Suspect]
     Indication: URGE INCONTINENCE
     Dosage: 5 MG DAILY PO
     Route: 048
     Dates: start: 20050421, end: 20050502
  2. CO-CODAMOL [Concomitant]

REACTIONS (4)
  - DIZZINESS [None]
  - GASTROOESOPHAGEAL REFLUX DISEASE [None]
  - URINARY RETENTION [None]
  - VOMITING [None]
